FAERS Safety Report 6787828-8 (Version None)
Quarter: 2010Q2

REPORT INFORMATION
  Report Type: 
  Country: None (occurrence: None)
  Receive Date: 20100621
  Receipt Date: 20100608
  Transmission Date: 20101027
  Serious: Yes (Hospitalization)
  Sender: FDA-Public Use
  Company Number: 232105J10USA

PATIENT
  Age: 29 Year
  Sex: Female
  Weight: 145 kg

DRUGS (12)
  1. REBIF [Suspect]
     Indication: MULTIPLE SCLEROSIS
     Dosage: 44 MCG, 3 IN 1 WK, SUBCUTANEOUS
     Route: 058
     Dates: start: 20090801, end: 20100101
  2. AMITIZA (ALL OTHER THERAPEUTIC PRODUCTS) [Concomitant]
  3. NEURONTIN [Concomitant]
  4. MS CONTIN [Concomitant]
  5. CELEXA [Concomitant]
  6. VALIUM [Concomitant]
  7. CARDIZEM CD [Concomitant]
  8. REGLAN [Concomitant]
  9. DIOVAN [Concomitant]
  10. SYNTHROID [Concomitant]
  11. OBETROL [Concomitant]
  12. SPIRONOLACTONE [Concomitant]

REACTIONS (10)
  - ABDOMINAL PAIN UPPER [None]
  - ASCITES [None]
  - DYSPNOEA [None]
  - GALLBLADDER DISORDER [None]
  - HEPATIC STEATOSIS [None]
  - HEPATOBILIARY SCAN ABNORMAL [None]
  - HEPATOMEGALY [None]
  - LIVER FUNCTION TEST ABNORMAL [None]
  - MULTIPLE SCLEROSIS RELAPSE [None]
  - OEDEMA PERIPHERAL [None]
